FAERS Safety Report 7121381-4 (Version None)
Quarter: 2010Q4

REPORT INFORMATION
  Report Type: 
  Country: None (occurrence: None)
  Receive Date: 20101124
  Receipt Date: 20101115
  Transmission Date: 20110411
  Serious: Yes (Life-Threatening)
  Sender: FDA-Public Use
  Company Number: NZ-ELI_LILLY_AND_COMPANY-NZ201009000787

PATIENT
  Sex: Female

DRUGS (4)
  1. ZYPREXA [Suspect]
     Indication: SCHIZOPHRENIA
     Dosage: 7.5 MG, EACH MORNING
     Route: 065
     Dates: start: 20080401
  2. ZYPREXA [Suspect]
     Dosage: 35 MG, EACH EVENING
     Route: 065
     Dates: start: 20080401
  3. LITHIUM [Concomitant]
     Indication: SCHIZOAFFECTIVE DISORDER
     Dosage: 750 MG, UNKNOWN
     Route: 065
     Dates: start: 20100101
  4. EPILIM [Concomitant]
     Indication: SCHIZOAFFECTIVE DISORDER
     Dosage: 2600 MG, UNKNOWN
     Route: 065

REACTIONS (3)
  - LUNG NEOPLASM MALIGNANT [None]
  - OVERDOSE [None]
  - SQUAMOUS CELL CARCINOMA [None]
